FAERS Safety Report 6224645-1 (Version None)
Quarter: 2009Q2

REPORT INFORMATION
  Report Type: 
  Country: None (occurrence: None)
  Receive Date: 20090612
  Receipt Date: 20090416
  Transmission Date: 20091009
  Serious: No
  Sender: FDA-Public Use
  Company Number: US-ABBOTT-09P-163-0564658-00

PATIENT
  Sex: Female
  Weight: 62.198 kg

DRUGS (3)
  1. HUMIRA [Suspect]
     Indication: CROHN'S DISEASE
     Dosage: 140 MG LOADING DOSE
     Route: 058
     Dates: start: 20090114, end: 20090114
  2. HUMIRA [Suspect]
     Route: 058
     Dates: start: 20090101, end: 20090301
  3. HUMIRA [Suspect]
     Route: 058
     Dates: start: 20090401, end: 20090401

REACTIONS (9)
  - ARTHRALGIA [None]
  - BLISTER [None]
  - ERYTHEMA [None]
  - EXFOLIATIVE RASH [None]
  - PAIN [None]
  - PRURITUS [None]
  - RASH ERYTHEMATOUS [None]
  - RASH PRURITIC [None]
  - WEIGHT INCREASED [None]
